FAERS Safety Report 12993319 (Version 5)
Quarter: 2017Q1

REPORT INFORMATION
  Report Type: Report from Study
  Country: AT (occurrence: AT)
  Receive Date: 20161202
  Receipt Date: 20170306
  Transmission Date: 20170428
  Serious: Yes (Hospitalization)
  Sender: FDA-Public Use
  Company Number: AT-TEVA-714737ACC

PATIENT
  Age: 72 Year
  Sex: Male

DRUGS (3)
  1. TREANDA [Suspect]
     Active Substance: BENDAMUSTINE HYDROCHLORIDE
     Indication: WALDENSTROM^S MACROGLOBULINAEMIA
     Dosage: (D1, D2 EVERY 4 WEEKS)
     Route: 042
     Dates: start: 20160803, end: 20160929
  2. LOVENOX [Concomitant]
     Active Substance: ENOXAPARIN SODIUM
     Indication: THROMBOSIS PROPHYLAXIS
     Dosage: 80 MG MORNING AND 60 MG IN THE EVENING
     Route: 058
     Dates: start: 20160831, end: 20170117
  3. MABTHERA [Suspect]
     Active Substance: RITUXIMAB
     Indication: WALDENSTROM^S MACROGLOBULINAEMIA
     Dosage: (D1, EVERY 4 WEEKS)
     Route: 042
     Dates: start: 20160802, end: 20160928

REACTIONS (3)
  - Liver disorder [Recovered/Resolved with Sequelae]
  - Retinal haemorrhage [Recovered/Resolved]
  - Liver disorder [Recovered/Resolved]

NARRATIVE: CASE EVENT DATE: 20161116
